FAERS Safety Report 6303134-X (Version None)
Quarter: 2009Q3

REPORT INFORMATION
  Report Type: 
  Country: None (occurrence: None)
  Receive Date: 20090810
  Receipt Date: 20090729
  Transmission Date: 20100115
  Serious: Yes (Death)
  Sender: FDA-Public Use
  Company Number: US-MERCK-0908USA00969

PATIENT
  Age: 79 Year
  Sex: Female

DRUGS (1)
  1. PRIMAXIN [Suspect]
     Indication: BACTERAEMIA
     Route: 042

REACTIONS (2)
  - DEATH [None]
  - DRUG INEFFECTIVE [None]
